FAERS Safety Report 6902691-X (Version None)
Quarter: 2010Q3

REPORT INFORMATION
  Report Type: 
  Country: None (occurrence: None)
  Receive Date: 20100803
  Receipt Date: 20080708
  Transmission Date: 20110219
  Serious: No
  Sender: FDA-Public Use
  Company Number: US-PFIZER INC-2008049867

PATIENT
  Sex: Female
  Weight: 84.09 kg

DRUGS (6)
  1. LYRICA [Suspect]
     Indication: FIBROMYALGIA
     Dates: start: 20070101, end: 20080425
  2. VERAPAMIL [Suspect]
     Indication: HYPERTENSION
     Dates: start: 20070901, end: 20080425
  3. NEURONTIN [Suspect]
     Indication: FIBROMYALGIA
     Dates: start: 20080425
  4. LISINOPRIL [Concomitant]
  5. VITAMIN D [Concomitant]
  6. HYDROCHLOROTHIAZIDE [Concomitant]

REACTIONS (5)
  - DRUG INEFFECTIVE [None]
  - INSOMNIA [None]
  - OEDEMA PERIPHERAL [None]
  - PAIN IN EXTREMITY [None]
  - TENDONITIS [None]
